FAERS Safety Report 25419032 (Version 2)
Quarter: 2025Q2

REPORT INFORMATION
  Report Type: Report from Study
  Country: US (occurrence: US)
  Receive Date: 20250610
  Receipt Date: 20250627
  Transmission Date: 20250717
  Serious: Yes (Other)
  Sender: REGENERON
  Company Number: US-REGENERON PHARMACEUTICALS, INC.-2025-018529

PATIENT
  Sex: Male

DRUGS (1)
  1. CEMIPLIMAB [Suspect]
     Active Substance: CEMIPLIMAB
     Indication: Basal cell carcinoma
     Dosage: 350 MG, Q3W
     Route: 042
     Dates: start: 20240316

REACTIONS (9)
  - Infected neoplasm [Recovering/Resolving]
  - Illness [Recovering/Resolving]
  - Lower respiratory tract infection [Recovered/Resolved]
  - Disease progression [Not Recovered/Not Resolved]
  - Weight increased [Recovering/Resolving]
  - Drug ineffective [Unknown]
  - Sinusitis [Recovered/Resolved]
  - Peripheral swelling [Unknown]
  - Weight decreased [Recovering/Resolving]

NARRATIVE: CASE EVENT DATE: 20250201
